FAERS Safety Report 16144603 (Version 2)
Quarter: 2019Q2

REPORT INFORMATION
  Report Type: Spontaneous
  Country: US (occurrence: US)
  Receive Date: 20190402
  Receipt Date: 20190604
  Transmission Date: 20190711
  Serious: No
  Sender: FDA-Public Use
  Company Number: US-AMGEN INC.-USASP2019048708

PATIENT

DRUGS (2)
  1. AIMOVIG [Suspect]
     Active Substance: ERENUMAB-AOOE
     Indication: MIGRAINE
     Dosage: 70 MILLIGRAM
     Route: 065
     Dates: start: 201807, end: 201811
  2. AIMOVIG [Suspect]
     Active Substance: ERENUMAB-AOOE
     Dosage: 140 MILLIGRAM
     Route: 065
     Dates: start: 201812, end: 201901

REACTIONS (8)
  - Temporomandibular joint syndrome [Unknown]
  - Constipation [Unknown]
  - Fibromyalgia [Not Recovered/Not Resolved]
  - Poor quality sleep [Unknown]
  - Migraine [Not Recovered/Not Resolved]
  - Therapeutic product effect decreased [Unknown]
  - Hypoaesthesia [Unknown]
  - Nightmare [Unknown]

NARRATIVE: CASE EVENT DATE: 2018
